FAERS Safety Report 19827178 (Version 3)
Quarter: 2024Q3

REPORT INFORMATION
  Report Type: Spontaneous
  Country: DE (occurrence: DE)
  Receive Date: 20210914
  Receipt Date: 20240909
  Transmission Date: 20241016
  Serious: Yes (Other)
  Sender: MYLAN
  Company Number: DE-002147023-NVSC2021DE073543

PATIENT
  Sex: Male

DRUGS (9)
  1. DOCETAXEL [Suspect]
     Active Substance: DOCETAXEL\DOCETAXEL ANHYDROUS
     Indication: Prostate cancer
     Dosage: UNK
     Route: 065
  2. ZOMETA [Suspect]
     Active Substance: ZOLEDRONIC ACID
     Indication: Metastases to spine
     Dosage: UNK UNK, Q28D
     Route: 065
  3. ZOMETA [Suspect]
     Active Substance: ZOLEDRONIC ACID
     Indication: Prostate cancer
     Dosage: 1 DOSAGE FORM, MONTHLY
     Route: 065
  4. ZOMETA [Suspect]
     Active Substance: ZOLEDRONIC ACID
     Dosage: UNK, QMO (EVERY 4 WEEKS)
     Route: 065
  5. TRENANTONE [Suspect]
     Active Substance: LEUPROLIDE ACETATE
     Indication: Prostate cancer
     Dosage: UNK UNK, Q28D
     Route: 065
  6. TRENANTONE [Suspect]
     Active Substance: LEUPROLIDE ACETATE
     Dosage: 1 DOSAGE FORM, MONTHLY
     Route: 065
  7. TRENANTONE [Suspect]
     Active Substance: LEUPROLIDE ACETATE
     Dosage: UNK
     Route: 065
  8. TRENANTONE [Suspect]
     Active Substance: LEUPROLIDE ACETATE
     Dosage: UNK, QMO (EVERY 4 WEEKS)
     Route: 065
  9. FLUOROURACIL\LEUCOVORIN CALCIUM\OXALIPLATIN [Suspect]
     Active Substance: FLUOROURACIL\LEUCOVORIN CALCIUM\OXALIPLATIN
     Indication: Colon cancer stage III
     Dosage: UNK
     Route: 065
     Dates: end: 2020

REACTIONS (5)
  - Metastases to lymph nodes [Unknown]
  - Colon cancer stage III [Unknown]
  - Hypoaesthesia [Not Recovered/Not Resolved]
  - Second primary malignancy [Unknown]
  - Paraesthesia [Not Recovered/Not Resolved]
